FAERS Safety Report 18220108 (Version 1)
Quarter: 2020Q3

REPORT INFORMATION
  Report Type: Spontaneous
  Country: FR (occurrence: FR)
  Receive Date: 20200902
  Receipt Date: 20200902
  Transmission Date: 20201103
  Serious: Yes (Other)
  Sender: FDA-Public Use
  Company Number: FR-CADILA HEALTHCARE LIMITED-FR-ZYDUS-022524

PATIENT

DRUGS (83)
  1. METFORMIN [Suspect]
     Active Substance: METFORMIN HYDROCHLORIDE
     Indication: PRODUCT USED FOR UNKNOWN INDICATION
     Dosage: UNK ()
     Route: 065
  2. METFORMIN [Suspect]
     Active Substance: METFORMIN HYDROCHLORIDE
     Indication: PRODUCT USED FOR UNKNOWN INDICATION
     Dosage: UNK ()
     Route: 065
  3. METFORMIN [Suspect]
     Active Substance: METFORMIN HYDROCHLORIDE
     Indication: PRODUCT USED FOR UNKNOWN INDICATION
     Dosage: UNK ()
     Route: 065
  4. METFORMIN [Suspect]
     Active Substance: METFORMIN HYDROCHLORIDE
     Indication: PRODUCT USED FOR UNKNOWN INDICATION
     Dosage: UNK ()
     Route: 065
  5. RALTEGRAVIR. [Concomitant]
     Active Substance: RALTEGRAVIR
     Indication: ANTIRETROVIRAL THERAPY
     Dosage: UNK ()
  6. RALTEGRAVIR. [Concomitant]
     Active Substance: RALTEGRAVIR
     Indication: ANTIRETROVIRAL THERAPY
     Dosage: UNK ()
  7. RALTEGRAVIR. [Concomitant]
     Active Substance: RALTEGRAVIR
     Dosage: UNK ()
  8. RALTEGRAVIR. [Concomitant]
     Active Substance: RALTEGRAVIR
     Dosage: UNK ()
  9. RALTEGRAVIR. [Concomitant]
     Active Substance: RALTEGRAVIR
     Dosage: UNK ()
  10. RITONAVIR. [Concomitant]
     Active Substance: RITONAVIR
     Dosage: ()
  11. DARUNAVIR [Concomitant]
     Active Substance: DARUNAVIR
     Dosage: UNK ()
  12. DARUNAVIR [Concomitant]
     Active Substance: DARUNAVIR
     Dosage: UNK ()
  13. DARUNAVIR [Concomitant]
     Active Substance: DARUNAVIR
     Dosage: UNK ()
  14. DARUNAVIR [Concomitant]
     Active Substance: DARUNAVIR
     Dosage: UNK ()
  15. DARUNAVIR [Concomitant]
     Active Substance: DARUNAVIR
     Dosage: UNK ()
  16. DARUNAVIR [Concomitant]
     Active Substance: DARUNAVIR
     Dosage: UNK ()
  17. DARUNAVIR [Concomitant]
     Active Substance: DARUNAVIR
     Dosage: UNK ()
  18. DARUNAVIR [Concomitant]
     Active Substance: DARUNAVIR
     Dosage: UNK ()
  19. METFORMIN [Suspect]
     Active Substance: METFORMIN HYDROCHLORIDE
     Indication: PRODUCT USED FOR UNKNOWN INDICATION
     Dosage: UNK ()
     Route: 065
  20. RALTEGRAVIR. [Concomitant]
     Active Substance: RALTEGRAVIR
     Dosage: UNK ()
  21. RALTEGRAVIR. [Concomitant]
     Active Substance: RALTEGRAVIR
     Dosage: UNK ()
  22. RALTEGRAVIR. [Concomitant]
     Active Substance: RALTEGRAVIR
     Dosage: UNK ()
  23. RALTEGRAVIR. [Concomitant]
     Active Substance: RALTEGRAVIR
     Dosage: UNK ()
  24. DARUNAVIR [Concomitant]
     Active Substance: DARUNAVIR
     Dosage: UNK ()
  25. DARUNAVIR [Concomitant]
     Active Substance: DARUNAVIR
     Dosage: UNK ()
  26. TENOFOVIR [Suspect]
     Active Substance: TENOFOVIR
     Indication: HIV INFECTION
     Dosage: UNK ()
     Route: 065
  27. EMTRICITABINE [Concomitant]
     Active Substance: EMTRICITABINE
  28. METFORMIN [Suspect]
     Active Substance: METFORMIN HYDROCHLORIDE
     Indication: PRODUCT USED FOR UNKNOWN INDICATION
     Dosage: UNK ()
     Route: 065
  29. METFORMIN [Suspect]
     Active Substance: METFORMIN HYDROCHLORIDE
     Indication: PRODUCT USED FOR UNKNOWN INDICATION
     Dosage: UNK ()
     Route: 065
  30. RALTEGRAVIR. [Concomitant]
     Active Substance: RALTEGRAVIR
     Indication: ANTIRETROVIRAL THERAPY
     Dosage: UNK ()
  31. RALTEGRAVIR. [Concomitant]
     Active Substance: RALTEGRAVIR
     Dosage: UNK ()
  32. RALTEGRAVIR. [Concomitant]
     Active Substance: RALTEGRAVIR
     Dosage: UNK ()
  33. RALTEGRAVIR. [Concomitant]
     Active Substance: RALTEGRAVIR
     Dosage: UNK ()
  34. RALTEGRAVIR. [Concomitant]
     Active Substance: RALTEGRAVIR
     Dosage: UNK ()
  35. DARUNAVIR [Concomitant]
     Active Substance: DARUNAVIR
     Indication: ANTIRETROVIRAL THERAPY
     Dosage: UNK ()
  36. DARUNAVIR [Concomitant]
     Active Substance: DARUNAVIR
     Indication: ANTIRETROVIRAL THERAPY
     Dosage: UNK ()
  37. DARUNAVIR [Concomitant]
     Active Substance: DARUNAVIR
     Indication: ANTIRETROVIRAL THERAPY
     Dosage: UNK ()
  38. DARUNAVIR [Concomitant]
     Active Substance: DARUNAVIR
     Dosage: UNK ()
  39. DARUNAVIR [Concomitant]
     Active Substance: DARUNAVIR
     Dosage: UNK ()
  40. DARUNAVIR [Concomitant]
     Active Substance: DARUNAVIR
     Dosage: UNK ()
  41. EMTRICITABINE [Concomitant]
     Active Substance: EMTRICITABINE
     Indication: ANTIRETROVIRAL THERAPY
  42. METFORMIN [Suspect]
     Active Substance: METFORMIN HYDROCHLORIDE
     Indication: PRODUCT USED FOR UNKNOWN INDICATION
     Dosage: UNK ()
     Route: 065
  43. METFORMIN [Suspect]
     Active Substance: METFORMIN HYDROCHLORIDE
     Indication: PRODUCT USED FOR UNKNOWN INDICATION
     Dosage: UNK ()
     Route: 065
  44. RALTEGRAVIR. [Concomitant]
     Active Substance: RALTEGRAVIR
     Dosage: UNK ()
  45. DARUNAVIR [Concomitant]
     Active Substance: DARUNAVIR
     Dosage: UNK ()
  46. DARUNAVIR [Concomitant]
     Active Substance: DARUNAVIR
     Dosage: UNK ()
  47. DARUNAVIR [Concomitant]
     Active Substance: DARUNAVIR
     Dosage: UNK ()
  48. EMTRICITABINE [Concomitant]
     Active Substance: EMTRICITABINE
     Dosage: UNK ()
  49. METFORMIN [Suspect]
     Active Substance: METFORMIN HYDROCHLORIDE
     Indication: PRODUCT USED FOR UNKNOWN INDICATION
     Dosage: UNK ()
     Route: 065
  50. METFORMIN [Suspect]
     Active Substance: METFORMIN HYDROCHLORIDE
     Indication: PRODUCT USED FOR UNKNOWN INDICATION
     Dosage: UNK ()
     Route: 065
  51. METFORMIN [Suspect]
     Active Substance: METFORMIN HYDROCHLORIDE
     Indication: PRODUCT USED FOR UNKNOWN INDICATION
     Dosage: UNK ()
     Route: 065
  52. RALTEGRAVIR. [Concomitant]
     Active Substance: RALTEGRAVIR
     Dosage: UNK ()
  53. RALTEGRAVIR. [Concomitant]
     Active Substance: RALTEGRAVIR
     Dosage: UNK ()
  54. RALTEGRAVIR. [Concomitant]
     Active Substance: RALTEGRAVIR
     Dosage: UNK ()
  55. RALTEGRAVIR. [Concomitant]
     Active Substance: RALTEGRAVIR
     Dosage: UNK ()
  56. RALTEGRAVIR. [Concomitant]
     Active Substance: RALTEGRAVIR
     Dosage: UNK ()
  57. DARUNAVIR [Concomitant]
     Active Substance: DARUNAVIR
     Dosage: UNK ()
  58. DARUNAVIR [Concomitant]
     Active Substance: DARUNAVIR
     Dosage: UNK ()
  59. METFORMIN [Suspect]
     Active Substance: METFORMIN HYDROCHLORIDE
     Indication: PRODUCT USED FOR UNKNOWN INDICATION
     Dosage: UNK ()
     Route: 065
  60. METFORMIN [Suspect]
     Active Substance: METFORMIN HYDROCHLORIDE
     Indication: PRODUCT USED FOR UNKNOWN INDICATION
     Dosage: UNK ()
     Route: 065
  61. RALTEGRAVIR. [Concomitant]
     Active Substance: RALTEGRAVIR
     Dosage: UNK ()
  62. RALTEGRAVIR. [Concomitant]
     Active Substance: RALTEGRAVIR
     Dosage: UNK ()
  63. EMTRICITABINE [Concomitant]
     Active Substance: EMTRICITABINE
     Dosage: UNK ()
  64. METFORMIN [Suspect]
     Active Substance: METFORMIN HYDROCHLORIDE
     Indication: PRODUCT USED FOR UNKNOWN INDICATION
     Dosage: UNK ()
     Route: 065
  65. METFORMIN [Suspect]
     Active Substance: METFORMIN HYDROCHLORIDE
     Indication: PRODUCT USED FOR UNKNOWN INDICATION
     Dosage: UNK ()
     Route: 065
  66. METFORMIN [Suspect]
     Active Substance: METFORMIN HYDROCHLORIDE
     Indication: PRODUCT USED FOR UNKNOWN INDICATION
     Dosage: UNK ()
     Route: 065
  67. RALTEGRAVIR. [Concomitant]
     Active Substance: RALTEGRAVIR
     Dosage: UNK ()
  68. RALTEGRAVIR. [Concomitant]
     Active Substance: RALTEGRAVIR
     Dosage: UNK ()
  69. DARUNAVIR [Concomitant]
     Active Substance: DARUNAVIR
     Dosage: UNK ()
  70. DARUNAVIR [Concomitant]
     Active Substance: DARUNAVIR
     Dosage: UNK ()
  71. DARUNAVIR [Concomitant]
     Active Substance: DARUNAVIR
     Dosage: UNK ()
  72. DARUNAVIR [Concomitant]
     Active Substance: DARUNAVIR
     Dosage: UNK ()
  73. DARUNAVIR [Concomitant]
     Active Substance: DARUNAVIR
     Dosage: UNK ()
  74. METFORMIN [Suspect]
     Active Substance: METFORMIN HYDROCHLORIDE
     Indication: PRODUCT USED FOR UNKNOWN INDICATION
     Dosage: UNK ()
     Route: 065
  75. METFORMIN [Suspect]
     Active Substance: METFORMIN HYDROCHLORIDE
     Indication: PRODUCT USED FOR UNKNOWN INDICATION
     Dosage: UNK ()
     Route: 065
  76. RALTEGRAVIR. [Concomitant]
     Active Substance: RALTEGRAVIR
     Dosage: UNK ()
  77. RALTEGRAVIR. [Concomitant]
     Active Substance: RALTEGRAVIR
     Dosage: UNK ()
  78. DARUNAVIR [Concomitant]
     Active Substance: DARUNAVIR
     Indication: ANTIRETROVIRAL THERAPY
     Dosage: UNK ()
  79. DARUNAVIR [Concomitant]
     Active Substance: DARUNAVIR
     Dosage: UNK ()
  80. DARUNAVIR [Concomitant]
     Active Substance: DARUNAVIR
     Dosage: UNK ()
  81. DARUNAVIR [Concomitant]
     Active Substance: DARUNAVIR
     Dosage: UNK ()
  82. TENOFOVIR [Suspect]
     Active Substance: TENOFOVIR
     Indication: ANTIRETROVIRAL THERAPY
     Dosage: ()
     Route: 065
  83. EMTRICITABINE [Concomitant]
     Active Substance: EMTRICITABINE
     Dosage: UNK ()

REACTIONS (3)
  - Nephropathy toxic [Unknown]
  - Renal tubular dysfunction [Unknown]
  - Acute kidney injury [Unknown]
